FAERS Safety Report 9291376 (Version 1)
Quarter: 2013Q2

REPORT INFORMATION
  Report Type: Spontaneous
  Country: US (occurrence: US)
  Receive Date: 20130515
  Receipt Date: 20130515
  Transmission Date: 20140414
  Serious: No
  Sender: FDA-Public Use
  Company Number: US-BAUSCH-BL-2012-002216

PATIENT
  Age: 72 Year
  Sex: Female

DRUGS (7)
  1. BROMDAY 0.09% [Suspect]
     Indication: PREOPERATIVE CARE
     Dosage: 1 DROP; TWICE A DAY, RIGHT EYE
     Route: 047
     Dates: start: 20121111, end: 20121212
  2. BROMDAY 0.09% [Suspect]
     Indication: POSTOPERATIVE CARE
     Dosage: 1 DROP; TWICE A DAY, LEFT EYE
     Route: 047
     Dates: start: 20121125, end: 20121212
  3. BESIVANCE (BESIFLOXACIN OPHTHALMIC SUSPENSION) 0.6% [Concomitant]
     Indication: POSTOPERATIVE CARE
     Dosage: 1 DROP; FOUR TIMES A DAY; RIGHT EYE
     Route: 047
     Dates: start: 20121114, end: 2012
  4. BESIVANCE (BESIFLOXACIN OPHTHALMIC SUSPENSION) 0.6% [Concomitant]
     Indication: OFF LABEL USE
     Dosage: 1 DROP; FOUR TIMES A DAY; LEFT EYE
     Route: 047
     Dates: start: 20121128, end: 20121212
  5. DIFLUPREDNATE [Concomitant]
     Indication: POSTOPERATIVE CARE
     Dosage: 1 DROP; FOUR TIMES A DAY; RIGHT EYE
     Route: 047
     Dates: start: 20121114, end: 2012
  6. DIFLUPREDNATE [Concomitant]
     Dosage: 1 DROP; FOUR TIMES A DAY; LEFT EYE
     Route: 047
     Dates: start: 20121128, end: 20121212
  7. TIMOLOL MALEATE [Concomitant]
     Indication: GLAUCOMA
     Dosage: 1 DROP; FOUR TIMES A DAY; RIGHT EYE
     Route: 047
     Dates: start: 20121114, end: 2012

REACTIONS (2)
  - Dysgeusia [Not Recovered/Not Resolved]
  - Salivary hypersecretion [Not Recovered/Not Resolved]
